FAERS Safety Report 12049739 (Version 1)
Quarter: 2016Q1

REPORT INFORMATION
  Report Type: Spontaneous
  Country: IT (occurrence: IT)
  Receive Date: 20160208
  Receipt Date: 20160208
  Transmission Date: 20160526
  Serious: Yes (Hospitalization)
  Sender: FDA-Public Use
  Company Number: IT-SA-2016SA019319

PATIENT
  Age: 52 Year
  Sex: Male
  Weight: 66 kg

DRUGS (9)
  1. NOVORAPID [Suspect]
     Active Substance: INSULIN ASPART
     Indication: DIABETES MELLITUS
     Dosage: DOSE:31 IU (LESS THAN 100) DAILY,DOSAGE FORM:SOLUTION FOR SC USE
     Route: 058
     Dates: start: 20120101, end: 20121025
  2. NOVORAPID [Suspect]
     Active Substance: INSULIN ASPART
     Indication: DIABETES MELLITUS
     Dosage: NOVORAPID 3 + 6 + 4 IU AT MEALS
     Route: 058
  3. ATARAX [Concomitant]
     Active Substance: HYDROXYZINE\HYDROXYZINE HYDROCHLORIDE
     Dosage: 25 MG DIVISIBLE
  4. TRIATEC [Concomitant]
     Active Substance: RAMIPRIL
     Dosage: 2.5 MG DIVISIBLE TABLETS
  5. LANTUS [Suspect]
     Active Substance: INSULIN GLARGINE
     Indication: DIABETES MELLITUS
     Dosage: DOSE:28 IU (LESS THAN 100) DAILY
     Route: 058
  6. LANTUS [Suspect]
     Active Substance: INSULIN GLARGINE
     Indication: DIABETES MELLITUS
     Dosage: DOSE:28 IU (LESS THAN 100) DAILY
     Route: 058
     Dates: start: 20120101, end: 20121025
  7. FLEXPEN [Concomitant]
     Active Substance: UNSPECIFIED INGREDIENT
     Dates: start: 20120101, end: 20121025
  8. FLEXPEN [Concomitant]
     Active Substance: UNSPECIFIED INGREDIENT
  9. LYRICA [Concomitant]
     Active Substance: PREGABALIN
     Dosage: 75 MG
     Route: 048

REACTIONS (4)
  - Loss of consciousness [Unknown]
  - Medication error [Unknown]
  - Fasting [Recovered/Resolved]
  - Hypoglycaemia [Recovered/Resolved]

NARRATIVE: CASE EVENT DATE: 20121025
